FAERS Safety Report 7247782-1 (Version None)
Quarter: 2011Q1

REPORT INFORMATION
  Report Type: 
  Country: None (occurrence: None)
  Receive Date: 20110127
  Receipt Date: 20110118
  Transmission Date: 20110831
  Serious: Yes (Life-Threatening, Hospitalization, Other)
  Sender: FDA-Public Use
  Company Number: US-ELI_LILLY_AND_COMPANY-US201006003284

PATIENT
  Sex: Female

DRUGS (1)
  1. ZYPREXA [Suspect]
     Indication: OBSESSIVE-COMPULSIVE DISORDER
     Dates: start: 20010101

REACTIONS (10)
  - DIABETES MELLITUS INADEQUATE CONTROL [None]
  - RENAL FAILURE [None]
  - NEUROPATHY PERIPHERAL [None]
  - AGGRESSION [None]
  - SUICIDAL IDEATION [None]
  - OFF LABEL USE [None]
  - DIABETIC HYPERGLYCAEMIC COMA [None]
  - PNEUMONIA [None]
  - WEIGHT INCREASED [None]
  - DYSPNOEA [None]
